FAERS Safety Report 8871339 (Version 1)
Quarter: 2012Q4

REPORT INFORMATION
  Report Type: 
  Country: US (occurrence: US)
  Receive Date: 20121029
  Receipt Date: 20121029
  Transmission Date: 20130627
  Serious: No
  Sender: FDA-Public Use
  Company Number: US-MYLANLABS-2012S1017003

PATIENT
  Age: 67 Year
  Sex: Male

DRUGS (5)
  1. CLONIDINE [Suspect]
     Indication: BLOOD PRESSURE INCREASED
     Dosage: q weekly
     Route: 062
     Dates: start: 20120625, end: 2012
  2. COREG [Concomitant]
  3. EXFORGE [Concomitant]
  4. LYRICA [Concomitant]
  5. ATORVASTATIN [Concomitant]

REACTIONS (3)
  - Application site reaction [Recovered/Resolved]
  - Application site burn [Recovered/Resolved]
  - Application site vesicles [Recovered/Resolved]
